FAERS Safety Report 6927909-9 (Version None)
Quarter: 2010Q3

REPORT INFORMATION
  Report Type: 
  Country: None (occurrence: None)
  Receive Date: 20100816
  Receipt Date: 20100816
  Transmission Date: 20110219
  Serious: Yes (Other)
  Sender: FDA-Public Use
  Company Number: None

PATIENT
  Age: 54 Year
  Sex: Female
  Weight: 61.2356 kg

DRUGS (1)
  1. METOCLOPRAMIDE HCL [Suspect]
     Indication: IMPAIRED GASTRIC EMPTYING
     Dosage: 10 MG 3 X DAILY PO
     Route: 048
     Dates: start: 20091120, end: 20100801

REACTIONS (3)
  - GLOSSITIS [None]
  - GLOSSODYNIA [None]
  - TARDIVE DYSKINESIA [None]
